FAERS Safety Report 8362101-5 (Version None)
Quarter: 2012Q2

REPORT INFORMATION
  Report Type: 
  Country: None (occurrence: None)
  Receive Date: 20120515
  Receipt Date: 20120504
  Transmission Date: 20120825
  Serious: Yes (Other)
  Sender: FDA-Public Use
  Company Number: GR-ABBOTT-12P-066-0935170-00

PATIENT
  Sex: Female

DRUGS (7)
  1. FOLIC ACID [Suspect]
     Indication: PRODUCT USED FOR UNKNOWN INDICATION
     Route: 065
  2. VITAMIN B COMPLEX CAP [Suspect]
     Indication: PRODUCT USED FOR UNKNOWN INDICATION
     Route: 065
  3. DARBEPOETIN ALFA [Concomitant]
     Indication: PRODUCT USED FOR UNKNOWN INDICATION
     Route: 065
  4. SEVELAMER HYDROCHLORIDE [Concomitant]
     Indication: PRODUCT USED FOR UNKNOWN INDICATION
     Route: 065
  5. PARICALCITOL [Suspect]
     Indication: PRODUCT USED FOR UNKNOWN INDICATION
     Route: 065
  6. PROMETRIUM [Suspect]
     Indication: PROPHYLAXIS OF ABORTION
     Dosage: START AT 22 WEEKS OF PREGNANCY
     Route: 065
  7. LEVOCARNITINE [Concomitant]
     Indication: PRODUCT USED FOR UNKNOWN INDICATION
     Route: 065

REACTIONS (4)
  - MATERNAL EXPOSURE DURING PREGNANCY [None]
  - OFF LABEL USE [None]
  - CAESAREAN SECTION [None]
  - PREMATURE RUPTURE OF MEMBRANES [None]
